FAERS Safety Report 6348981-3 (Version None)
Quarter: 2009Q3

REPORT INFORMATION
  Report Type: 
  Country: None (occurrence: None)
  Receive Date: 20090911
  Receipt Date: 20090903
  Transmission Date: 20100115
  Serious: Yes (Other)
  Sender: FDA-Public Use
  Company Number: MX-AVENTIS-200920047GDDC

PATIENT
  Age: 53 Year
  Sex: Female
  Weight: 82.5 kg

DRUGS (5)
  1. LANTUS [Suspect]
     Indication: TYPE 2 DIABETES MELLITUS
     Route: 058
     Dates: start: 20081201, end: 20090601
  2. ATACAND [Concomitant]
     Route: 048
  3. ZYLOPRIM [Concomitant]
     Route: 048
  4. SIMVASTATIN [Concomitant]
     Dosage: DOSE: UNK
     Route: 048
  5. LYRICA [Concomitant]
     Indication: DIABETIC NEUROPATHY
     Dosage: DOSE: UNK
     Route: 048

REACTIONS (1)
  - TIBIA FRACTURE [None]
